FAERS Safety Report 4499347-2 (Version None)
Quarter: 2004Q4

REPORT INFORMATION
  Report Type: 
  Country: None (occurrence: None)
  Receive Date: 20041111
  Receipt Date: 20040924
  Transmission Date: 20050328
  Serious: Yes (Hospitalization)
  Sender: FDA-Public Use
  Company Number: DE-MERCK-0409DEU00173

PATIENT
  Age: 64 Year
  Sex: Male
  Weight: 84 kg

DRUGS (8)
  1. FUROSEMIDE [Concomitant]
     Route: 048
  2. FEXOFENADINE HYDROCHLORIDE [Concomitant]
     Route: 048
  3. ALLOPURINOL [Concomitant]
     Route: 048
  4. FLUDROCORTISONE [Concomitant]
     Route: 048
  5. ZETIA [Suspect]
     Indication: HYPERCHOLESTEROLAEMIA
     Route: 048
     Dates: end: 20040101
  6. NEBIVOLOL HYDROCHLORIDE [Concomitant]
     Route: 048
  7. LERCANIDIPINE HYDROCHLORIDE [Concomitant]
     Route: 048
  8. LISINOPRIL [Concomitant]
     Route: 048

REACTIONS (1)
  - BLOOD CREATINE PHOSPHOKINASE INCREASED [None]
